FAERS Safety Report 25702773 (Version 1)
Quarter: 2025Q3

REPORT INFORMATION
  Report Type: Spontaneous
  Country: EU (occurrence: EU)
  Receive Date: 20250819
  Receipt Date: 20250819
  Transmission Date: 20251020
  Serious: Yes (Other)
  Sender: NOVARTIS
  Company Number: EU-002147023-NVSC2025DE127403

PATIENT
  Sex: Female

DRUGS (1)
  1. KISQALI [Suspect]
     Active Substance: RIBOCICLIB SUCCINATE
     Indication: Metastatic neoplasm
     Dosage: 600 MG, QD,IN THE MORNINGS
     Route: 065
     Dates: start: 202312

REACTIONS (6)
  - Metastases to skin [Unknown]
  - Recurrent cancer [Unknown]
  - Pruritus [Recovered/Resolved]
  - Herpes zoster [Recovering/Resolving]
  - Pain [Recovering/Resolving]
  - Shoulder deformity [Unknown]
